FAERS Safety Report 4352410-9 (Version None)
Quarter: 2004Q2

REPORT INFORMATION
  Report Type: 
  Country: None (occurrence: None)
  Receive Date: 20040428
  Receipt Date: 20040415
  Transmission Date: 20050107
  Serious: Yes (Disabling)
  Sender: FDA-Public Use
  Company Number: 2003AP03048

PATIENT
  Age: 76 Year
  Sex: Male

DRUGS (9)
  1. IRESSA [Suspect]
     Indication: LUNG ADENOCARCINOMA
     Dosage: SEE IMAGE
     Route: 048
     Dates: start: 20030821, end: 20030827
  2. IRESSA [Suspect]
     Indication: NON-SMALL CELL LUNG CANCER
     Dosage: SEE IMAGE
     Route: 048
     Dates: start: 20030821, end: 20030827
  3. IRESSA [Suspect]
     Indication: LUNG ADENOCARCINOMA
     Dosage: SEE IMAGE
     Route: 048
     Dates: start: 20030916, end: 20031006
  4. IRESSA [Suspect]
     Indication: NON-SMALL CELL LUNG CANCER
     Dosage: SEE IMAGE
     Route: 048
     Dates: start: 20030916, end: 20031006
  5. IRESSA [Suspect]
     Indication: LUNG ADENOCARCINOMA
     Dosage: SEE IMAGE
     Route: 048
     Dates: start: 20031007, end: 20040202
  6. IRESSA [Suspect]
     Indication: NON-SMALL CELL LUNG CANCER
     Dosage: SEE IMAGE
     Route: 048
     Dates: start: 20031007, end: 20040202
  7. ALLOPURINOL [Concomitant]
  8. PLETAL [Concomitant]
  9. NORVASC [Concomitant]

REACTIONS (3)
  - CONDITION AGGRAVATED [None]
  - HAEMODIALYSIS [None]
  - RENAL FAILURE CHRONIC [None]
